FAERS Safety Report 4752909-7 (Version None)
Quarter: 2005Q3

REPORT INFORMATION
  Report Type: 
  Country: None (occurrence: None)
  Receive Date: 20050714
  Receipt Date: 20041210
  Transmission Date: 20060218
  Serious: Yes (Hospitalization)
  Sender: FDA-Public Use
  Company Number: 200419485US

PATIENT
  Sex: Female

DRUGS (2)
  1. TAXOTERE [Suspect]
     Indication: BREAST CANCER METASTATIC
     Dosage: Q3W
  2. XELODA [Concomitant]

REACTIONS (2)
  - DYSPNOEA [None]
  - LUNG INFILTRATION [None]
